FAERS Safety Report 15849063 (Version 1)
Quarter: 2019Q1

REPORT INFORMATION
  Report Type: Other
  Country: DE (occurrence: DE)
  Receive Date: 20190121
  Receipt Date: 20190121
  Transmission Date: 20190417
  Serious: Yes (Hospitalization)
  Sender: FDA-Public Use
  Company Number: DE-EMCURE PHARMS-2018HTG00345

PATIENT
  Age: 24 Year
  Sex: Male
  Weight: 58 kg

DRUGS (11)
  1. ETOPOSIDE. [Suspect]
     Active Substance: ETOPOSIDE
     Dosage: 75 MG/M?
     Route: 042
  2. METOPROLOL. [Concomitant]
     Active Substance: METOPROLOL
     Dosage: 47.5 MG, 2X/DAY
     Route: 048
  3. FOLSAEURE [Concomitant]
     Active Substance: FOLIC ACID
     Dosage: 5 MG, 1X/DAY
     Route: 048
  4. RITUXIMAB. [Suspect]
     Active Substance: RITUXIMAB
     Dosage: 375 MG/M?
     Route: 042
  5. MELPHALAN. [Suspect]
     Active Substance: MELPHALAN
     Dosage: 20 MG/M?
     Route: 042
  6. CIPROFLOXACIN. [Concomitant]
     Active Substance: CIPROFLOXACIN
     Dosage: 500 MG, 2X/DAY
     Route: 048
  7. NEUPOGEN [Concomitant]
     Active Substance: FILGRASTIM
     Dosage: 48 MIO.E., 1X/DAY
     Route: 058
  8. CARMUSTINE. [Suspect]
     Active Substance: CARMUSTINE
     Dosage: 60 MG/M?
     Route: 042
  9. PANTOPRAZOLE [Concomitant]
     Active Substance: PANTOPRAZOLE
     Dosage: 40 MG, 1X/DAY
     Route: 048
  10. CYTARABINE. [Suspect]
     Active Substance: CYTARABINE
     Dosage: 200 MG/M?
     Route: 042
  11. AMPHO-MORONAL [Concomitant]
     Active Substance: AMPHOTERICIN B
     Dosage: 10 MG, 4X/DAY
     Route: 048

REACTIONS (3)
  - Pollakiuria [Unknown]
  - Pyrexia [Unknown]
  - Cough [Unknown]
